FAERS Safety Report 8413352-2 (Version None)
Quarter: 2012Q2

REPORT INFORMATION
  Report Type: 
  Country: None (occurrence: None)
  Receive Date: 20120605
  Receipt Date: 20120525
  Transmission Date: 20120825
  Serious: Yes (Other)
  Sender: FDA-Public Use
  Company Number: CA-JNJFOC-20120519555

PATIENT
  Sex: Female
  Weight: 71 kg

DRUGS (4)
  1. METHOTREXATE [Concomitant]
     Route: 065
  2. REMICADE [Suspect]
     Indication: CROHN'S DISEASE
     Route: 042
     Dates: start: 20120412
  3. IRON [Concomitant]
     Route: 065
  4. DILAUDID [Concomitant]
     Route: 065

REACTIONS (6)
  - SINUS HEADACHE [None]
  - SINUS CONGESTION [None]
  - RECTAL HAEMORRHAGE [None]
  - ABDOMINAL PAIN [None]
  - NAUSEA [None]
  - INSOMNIA [None]
